FAERS Safety Report 24100274 (Version 3)
Quarter: 2024Q3

REPORT INFORMATION
  Report Type: Spontaneous
  Country: US (occurrence: US)
  Receive Date: 20240717
  Receipt Date: 20240725
  Transmission Date: 20241017
  Serious: No
  Sender: ROCHE
  Company Number: US-ROCHE-10000026394

PATIENT
  Sex: Female
  Weight: 21.77 kg

DRUGS (1)
  1. NUTROPIN [Suspect]
     Active Substance: SOMATROPIN
     Indication: Growth hormone deficiency
     Route: 058

REACTIONS (3)
  - Urticaria [Recovered/Resolved]
  - Contusion [Recovered/Resolved]
  - Device defective [Unknown]
